FAERS Safety Report 19181775 (Version 2)
Quarter: 2021Q3

REPORT INFORMATION
  Report Type: Report from Study
  Country: JP (occurrence: JP)
  Receive Date: 20210426
  Receipt Date: 20210716
  Transmission Date: 20211014
  Serious: Yes (Life-Threatening, Hospitalization)
  Sender: FDA-Public Use
  Company Number: JP-BIOGEN-2020BI00918927

PATIENT
  Age: 6 Month
  Sex: Male
  Weight: 6.3 kg

DRUGS (12)
  1. SPINRAZA [Suspect]
     Active Substance: NUSINERSEN
     Route: 037
     Dates: start: 20200204, end: 20200204
  2. SPINRAZA [Suspect]
     Active Substance: NUSINERSEN
     Route: 037
     Dates: start: 20200218, end: 20200218
  3. XYLOCAINE [Concomitant]
     Active Substance: LIDOCAINE HYDROCHLORIDE
     Indication: ANAESTHESIA PROCEDURE
     Route: 058
     Dates: start: 20200121
  4. HIRUDOID [Concomitant]
     Active Substance: GLYCOSAMINOGLYCANS
     Indication: DERMATITIS ATOPIC
     Route: 003
     Dates: start: 20200729, end: 20200902
  5. LOCOID [Concomitant]
     Active Substance: HYDROCORTISONE BUTYRATE
     Indication: DERMATITIS ATOPIC
     Route: 050
     Dates: start: 20200729, end: 20200902
  6. SPINRAZA [Suspect]
     Active Substance: NUSINERSEN
     Route: 037
     Dates: start: 20200324, end: 20200324
  7. TSUMURA RIKKUNSHITO EXTRACT GRANULES FOR ETHICAL USE [Concomitant]
     Active Substance: HERBALS
     Indication: DYSPEPSIA
     Route: 048
     Dates: start: 20200809, end: 20200818
  8. ALINAMIN F [Concomitant]
     Active Substance: FURSULTIAMINE HYDROCHLORIDE
     Indication: VITAMIN SUPPLEMENTATION
     Route: 042
     Dates: start: 20200801, end: 20200811
  9. BIOFERMIN [Concomitant]
     Active Substance: DIETARY SUPPLEMENT\PROBIOTICS
     Indication: DYSPEPSIA
     Route: 048
     Dates: start: 20200811, end: 20200818
  10. SPINRAZA [Suspect]
     Active Substance: NUSINERSEN
     Indication: SPINAL MUSCULAR ATROPHY
     Route: 037
     Dates: start: 20200121, end: 20200121
  11. DEXAN VG [Concomitant]
     Indication: ECZEMA
     Route: 050
     Dates: start: 20200730, end: 20200814
  12. SPINRAZA [Suspect]
     Active Substance: NUSINERSEN
     Route: 037
     Dates: start: 20200721, end: 20200721

REACTIONS (5)
  - Conjunctivitis [Recovered/Resolved]
  - Dermatitis atopic [Recovered/Resolved]
  - Hepatic function abnormal [Recovered/Resolved]
  - Iron deficiency anaemia [Recovered/Resolved]
  - Pneumonia aspiration [Recovered/Resolved with Sequelae]

NARRATIVE: CASE EVENT DATE: 20200122
